FAERS Safety Report 9929100 (Version 2)
Quarter: 2014Q2

REPORT INFORMATION
  Report Type: Spontaneous
  Country: TH (occurrence: TH)
  Receive Date: 20140227
  Receipt Date: 20140402
  Transmission Date: 20141212
  Serious: Yes (Hospitalization)
  Sender: FDA-Public Use
  Company Number: TH-BRISTOL-MYERS SQUIBB COMPANY-20232344

PATIENT
  Age: 28 Year
  Sex: Female

DRUGS (3)
  1. REYATAZ [Suspect]
     Indication: PROPHYLAXIS
     Route: 048
     Dates: start: 20140212, end: 20140214
  2. TENOFOVIR [Suspect]
     Indication: PROPHYLAXIS
     Dates: start: 20140212
  3. EMTRICITABINE [Suspect]
     Indication: PROPHYLAXIS
     Dates: start: 20140212

REACTIONS (6)
  - Blood pressure decreased [Recovered/Resolved]
  - Swelling face [Recovered/Resolved]
  - Peripheral swelling [Recovered/Resolved]
  - Eyelid oedema [Recovered/Resolved]
  - Vomiting [Recovering/Resolving]
  - Diarrhoea [Recovering/Resolving]
